FAERS Safety Report 8879520 (Version 1)
Quarter: 2012Q4

REPORT INFORMATION
  Report Type: 
  Country: GB (occurrence: GB)
  Receive Date: 20121031
  Receipt Date: 20121031
  Transmission Date: 20130627
  Serious: Yes (Life-Threatening)
  Sender: FDA-Public Use
  Company Number: GB-ASTRAZENECA-2012SE81490

PATIENT
  Age: 48 Year
  Sex: Female

DRUGS (15)
  1. TRAZODONE HYDROCHLORIDE [Concomitant]
  2. VOLTAROL [Concomitant]
  3. LIDOCAINE [Suspect]
     Indication: BURSITIS
     Route: 014
     Dates: start: 20121002, end: 20121002
  4. ADCORTYL [Suspect]
     Indication: BURSITIS
     Route: 014
     Dates: start: 20121002, end: 20121002
  5. BETAHISTINE DIHYDROCHLORIDE [Concomitant]
  6. CINNARIZINE [Concomitant]
  7. FEXOFENADINE HYDROCHLORIDE [Concomitant]
  8. FUROSEMIDE [Concomitant]
  9. GABAPENTIN [Concomitant]
  10. LANSOPRAZOLE [Concomitant]
  11. METFORMIN [Concomitant]
  12. NAPROXEN [Concomitant]
  13. PARACETAMOL [Concomitant]
  14. PROCHLORPERAZINE MALEATE [Concomitant]
  15. SIMVASTATIN [Concomitant]

REACTIONS (2)
  - Anaphylactic reaction [Recovered/Resolved]
  - Pain in extremity [Recovered/Resolved]
